FAERS Safety Report 16712469 (Version 1)
Quarter: 2019Q3

REPORT INFORMATION
  Report Type: Spontaneous
  Country: US (occurrence: US)
  Receive Date: 20190816
  Receipt Date: 20190816
  Transmission Date: 20191004
  Serious: Yes (Other)
  Sender: FDA-Public Use
  Company Number: US-GLAXOSMITHKLINE-US2019GSK149681

PATIENT
  Sex: Female

DRUGS (3)
  1. PANTOPRAZOLE [Suspect]
     Active Substance: PANTOPRAZOLE
     Indication: GASTROOESOPHAGEAL REFLUX DISEASE
     Dosage: 40 MG, QD
     Route: 065
  2. PREVACID [Suspect]
     Active Substance: LANSOPRAZOLE
     Indication: GASTROOESOPHAGEAL REFLUX DISEASE
     Dosage: UNK
     Route: 065
  3. PREVACID [Suspect]
     Active Substance: LANSOPRAZOLE
     Indication: GASTROOESOPHAGEAL REFLUX DISEASE
     Dosage: 15 MG, QD
     Route: 065

REACTIONS (15)
  - End stage renal disease [Unknown]
  - Renal vessel disorder [Unknown]
  - Nephropathy [Unknown]
  - Proteinuria [Unknown]
  - Acute kidney injury [Unknown]
  - Renal failure [Unknown]
  - Kidney small [Unknown]
  - Pyelonephritis [Unknown]
  - Nephrogenic anaemia [Unknown]
  - Pollakiuria [Unknown]
  - Renal atrophy [Unknown]
  - Tubulointerstitial nephritis [Unknown]
  - Kidney infection [Unknown]
  - Chronic kidney disease [Unknown]
  - Dysuria [Unknown]
